FAERS Safety Report 6665691-3 (Version None)
Quarter: 2010Q2

REPORT INFORMATION
  Report Type: 
  Country: None (occurrence: None)
  Receive Date: 20100402
  Receipt Date: 20100331
  Transmission Date: 20101027
  Serious: Yes (Other)
  Sender: FDA-Public Use
  Company Number: FR-ELI_LILLY_AND_COMPANY-FR200907005487

PATIENT
  Age: 53 Year
  Sex: Female
  Weight: 80 kg

DRUGS (12)
  1. BYETTA [Suspect]
     Indication: TYPE 2 DIABETES MELLITUS
     Dosage: 5 UG, EACH MORNING
     Route: 058
     Dates: start: 20090414, end: 20090514
  2. BYETTA [Suspect]
     Dosage: 5 UG, EACH EVENING, ONE HOUR AFTER MEAL
     Route: 058
     Dates: start: 20090414, end: 20090514
  3. BYETTA [Suspect]
     Dosage: 10 UG, EACH MORNING
     Route: 058
     Dates: start: 20090515, end: 20090630
  4. BYETTA [Suspect]
     Dosage: 10 UG, EACH EVENING, ONE HOUR AFTER MEAL
     Route: 058
     Dates: start: 20090515, end: 20090630
  5. BISOPROLOL FUMARATE [Concomitant]
     Indication: ISCHAEMIC CARDIOMYOPATHY
     Dosage: 10 MG, DAILY (1/D)
  6. BISOPROLOL FUMARATE [Concomitant]
     Dosage: 1 TAB MORNING AND 1/2 TAB EVENING
  7. KARDEGIC [Concomitant]
     Dosage: 75 D/F, DAILY (1/D)
     Route: 048
     Dates: start: 20020101
  8. TRIATEC [Concomitant]
     Dosage: 5 D/F, DAILY (1/D)
     Route: 048
     Dates: start: 20020101
  9. HYPERIUM [Concomitant]
     Dosage: 10 D/F, DAILY (1/D)
     Route: 048
     Dates: start: 20020101
  10. LIPANTHYL [Concomitant]
     Dosage: 160 D/F, DAILY (1/D)
     Route: 048
     Dates: start: 20020101
  11. VOLTAREN [Concomitant]
     Dosage: 160 D/F, DAILY (1/D)
     Route: 048
     Dates: start: 20020101
  12. LANZOR [Concomitant]
     Dosage: 15 D/F, DAILY (1/D)
     Route: 048
     Dates: start: 20020101

REACTIONS (7)
  - DISORIENTATION [None]
  - MEMORY IMPAIRMENT [None]
  - PALPITATIONS [None]
  - SINUS TACHYCARDIA [None]
  - SUPRAVENTRICULAR EXTRASYSTOLES [None]
  - VENTRICULAR EXTRASYSTOLES [None]
  - WEIGHT DECREASED [None]
